FAERS Safety Report 10049382 (Version 2)
Quarter: 2014Q2

REPORT INFORMATION
  Report Type: Report from Study
  Country: US (occurrence: US)
  Receive Date: 20140401
  Receipt Date: 20140401
  Transmission Date: 20141212
  Serious: Yes (Death)
  Sender: FDA-Public Use
  Company Number: US-ROCHE-1360349

PATIENT
  Age: 90 Year
  Sex: Female

DRUGS (1)
  1. XELODA [Suspect]
     Indication: BREAST CANCER
     Route: 048
     Dates: start: 201205, end: 20120913

REACTIONS (4)
  - Breast cancer [Fatal]
  - Urosepsis [Fatal]
  - Nausea [Unknown]
  - Vomiting [Unknown]
